FAERS Safety Report 10182938 (Version 2)
Quarter: 2014Q2

REPORT INFORMATION
  Report Type: Spontaneous
  Country: US (occurrence: US)
  Receive Date: 20140520
  Receipt Date: 20140616
  Transmission Date: 20141212
  Serious: No
  Sender: FDA-Public Use
  Company Number: US-PFIZER INC-2014135364

PATIENT
  Age: 28 Year
  Sex: Male
  Weight: 92.97 kg

DRUGS (1)
  1. VFEND [Suspect]
     Indication: FUNGAL INFECTION
     Dosage: 2X/DAY  (ON AND OFF )
     Dates: start: 20130927

REACTIONS (4)
  - Eye disorder [Unknown]
  - Impaired driving ability [Unknown]
  - Photophobia [Unknown]
  - Insomnia [Unknown]
